FAERS Safety Report 26119761 (Version 2)
Quarter: 2025Q4

REPORT INFORMATION
  Report Type: Report from Study
  Country: US (occurrence: US)
  Receive Date: 20251204
  Receipt Date: 20251222
  Transmission Date: 20260118
  Serious: Yes (Other)
  Sender: TEVA
  Company Number: US-TEVA-VS-3397281

PATIENT

DRUGS (2)
  1. AMOXICILLIN [Suspect]
     Active Substance: AMOXICILLIN
     Indication: Drug provocation test
     Dosage: DOSE 1: 50MG ?1; MONITORED FOR 5 MINUTES
     Route: 048
  2. AMOXICILLIN [Suspect]
     Active Substance: AMOXICILLIN
     Indication: Drug provocation test
     Dosage: DOSE 2: 200MG ?1; MONITORED FOR 1HR
     Route: 048

REACTIONS (2)
  - Type I hypersensitivity [Unknown]
  - Drug hypersensitivity [Unknown]
